FAERS Safety Report 8319976-5 (Version None)
Quarter: 2012Q2

REPORT INFORMATION
  Report Type: 
  Country: None (occurrence: None)
  Receive Date: 20120427
  Receipt Date: 20120411
  Transmission Date: 20120825
  Serious: Yes (Other)
  Sender: FDA-Public Use
  Company Number: CA-ROCHE-1063670

PATIENT
  Sex: Female

DRUGS (5)
  1. SYMBICORT [Concomitant]
  2. PREDNISONE TAB [Concomitant]
     Route: 048
  3. XOLAIR [Suspect]
     Indication: ASTHMA
     Route: 058
     Dates: start: 20111123
  4. BIAXIN (CANADA) [Concomitant]
  5. SINGULAIR [Concomitant]

REACTIONS (2)
  - DYSPNOEA [None]
  - CHEST PAIN [None]
